FAERS Safety Report 10353278 (Version 1)
Quarter: 2014Q3

REPORT INFORMATION
  Report Type: Spontaneous
  Country: US (occurrence: US)
  Receive Date: 20140730
  Receipt Date: 20140730
  Transmission Date: 20150326
  Serious: Yes (Other)
  Sender: FDA-Public Use
  Company Number: US-BRISTOL-MYERS SQUIBB COMPANY-20683215

PATIENT
  Sex: Female

DRUGS (3)
  1. METFORMIN HCL [Suspect]
     Active Substance: METFORMIN HYDROCHLORIDE
  2. VICTOZA [Suspect]
     Active Substance: LIRAGLUTIDE
  3. JANUVIA [Suspect]
     Active Substance: SITAGLIPTIN PHOSPHATE

REACTIONS (7)
  - Nausea [Unknown]
  - Suicidal ideation [Unknown]
  - Fatigue [Unknown]
  - Vision blurred [Unknown]
  - Memory impairment [Unknown]
  - Anxiety [Unknown]
  - Depression [Unknown]
